FAERS Safety Report 10186520 (Version 1)
Quarter: 2014Q2

REPORT INFORMATION
  Report Type: Spontaneous
  Country: US (occurrence: US)
  Receive Date: 20140521
  Receipt Date: 20140521
  Transmission Date: 20141212
  Serious: Yes (Hospitalization)
  Sender: FDA-Public Use
  Company Number: US-B.I. PHARMACEUTICALS,INC./RIDGEFIELD-2014-BI-21902BP

PATIENT
  Age: 70 Year
  Sex: Female

DRUGS (6)
  1. DULCOLAX TABLETS [Suspect]
     Indication: CONSTIPATION
     Route: 065
     Dates: start: 20140403
  2. IPILIMUMAB [Suspect]
     Indication: MALIGNANT MELANOMA
     Dosage: DOSE PER APPLICATION AND DAILY DOSE: 3 MILLIGRAM/KILOGRAM CYCLICAL
     Route: 042
     Dates: start: 20140303, end: 20140324
  3. IPILIMUMAB [Suspect]
     Dosage: DOSE PER APPLICATION AND DAILY DOSE: 3 MILLIGRAM/KILOGRAM CYCLICAL
     Route: 042
     Dates: start: 20140303, end: 20140324
  4. INTERFERON ALFA-2B [Suspect]
     Indication: MALIGNANT MELANOMA
     Dosage: DOSE PER APPLICATION AND DAILY DOSE:   1 DOSAGE FORM CYCLICAL/ 10 MU PER M2
     Route: 058
     Dates: start: 20140303, end: 20140324
  5. INTERFERON ALFA-2B [Suspect]
     Dosage: DOSE PER APPLICATION AND DAILY DOSE:  10 MU PER M2, TOTAL DOSE: 161 MILLIUNIT
     Route: 058
     Dates: start: 20140303, end: 20140324
  6. INTERFERON ALFA-2B [Suspect]
     Dosage: DOSE PER APPLICATION AND DAILY DOSE:  10 MU PER M2; TOTAL DOSE: 161 MILLIUNIT
     Route: 058
     Dates: start: 20140303, end: 20140324

REACTIONS (2)
  - Diarrhoea [Not Recovered/Not Resolved]
  - Colitis [Not Recovered/Not Resolved]
